FAERS Safety Report 7190443-8 (Version None)
Quarter: 2010Q4

REPORT INFORMATION
  Report Type: 
  Country: None (occurrence: None)
  Receive Date: 20101221
  Receipt Date: 20101221
  Transmission Date: 20110411
  Serious: Yes (Hospitalization)
  Sender: FDA-Public Use
  Company Number: None

PATIENT
  Sex: Female
  Weight: 68.7 kg

DRUGS (8)
  1. CYCLOPHOSPHAMIDE [Suspect]
     Dosage: 1650 MG
  2. CYTARABINE [Suspect]
     Dosage: 991 MG
  3. DEXAMETHASONE [Suspect]
     Dosage: 245 MG
  4. DOXORUBICIN HYDROCHLORIDE [Suspect]
     Dosage: 122.7 MG
  5. METHOTREXATE [Suspect]
     Dosage: 45 MG
  6. PEG-L-ASPARAGINASE (K-H) [Suspect]
     Dosage: 4075 IU
  7. THIOGUANINE [Suspect]
     Dosage: 1200 MG
  8. VINCRISTINE SULFATE [Suspect]
     Dosage: 3 MG

REACTIONS (10)
  - AREFLEXIA [None]
  - CARDIO-RESPIRATORY ARREST [None]
  - ENDOTRACHEAL INTUBATION COMPLICATION [None]
  - HAEMOPTYSIS [None]
  - HYPOXIC-ISCHAEMIC ENCEPHALOPATHY [None]
  - PANCYTOPENIA [None]
  - PULMONARY HAEMORRHAGE [None]
  - PYREXIA [None]
  - RESPIRATORY DISTRESS [None]
  - WEANING FAILURE [None]
